FAERS Safety Report 15188793 (Version 4)
Quarter: 2018Q3

REPORT INFORMATION
  Report Type: Report from Study
  Country: CA (occurrence: CA)
  Receive Date: 20180724
  Receipt Date: 20180910
  Transmission Date: 20181010
  Serious: Yes (Other)
  Sender: FDA-Public Use
  Company Number: CA-ROCHE-2126806

PATIENT
  Age: 69 Year
  Sex: Female

DRUGS (18)
  1. ESBRIET [Suspect]
     Active Substance: PIRFENIDONE
     Route: 048
     Dates: start: 2018
  2. OXYBUTYNIN. [Concomitant]
     Active Substance: OXYBUTYNIN CHLORIDE
  3. URSODIOL. [Concomitant]
     Active Substance: URSODIOL
  4. LORAZEPAM. [Concomitant]
     Active Substance: LORAZEPAM
  5. ALEVE [Concomitant]
     Active Substance: NAPROXEN SODIUM
  6. ESBRIET [Suspect]
     Active Substance: PIRFENIDONE
     Route: 048
     Dates: start: 2018, end: 201807
  7. EZETIMIBE. [Concomitant]
     Active Substance: EZETIMIBE
  8. ZOPICLONE [Concomitant]
     Active Substance: ZOPICLONE
  9. PEPTO?BISMOL [Concomitant]
     Active Substance: BISMUTH SUBSALICYLATE
  10. ESBRIET [Suspect]
     Active Substance: PIRFENIDONE
     Route: 048
     Dates: start: 20180711
  11. PANTOPRAZOLE [Concomitant]
     Active Substance: PANTOPRAZOLE
     Dosage: TWICE A DAY
     Route: 065
  12. RESPIMAT (UNK INGREDIENTS) [Concomitant]
  13. ESBRIET [Suspect]
     Active Substance: PIRFENIDONE
     Indication: IDIOPATHIC PULMONARY FIBROSIS
     Dosage: 3 PILLS 3 TIMES A DAY
     Route: 048
     Dates: start: 20180514, end: 2018
  14. SPIRIVA [Concomitant]
     Active Substance: TIOTROPIUM BROMIDE MONOHYDRATE
  15. SYNTHROID [Concomitant]
     Active Substance: LEVOTHYROXINE SODIUM
  16. VITAMIN D3 [Concomitant]
     Active Substance: CHOLECALCIFEROL
  17. VENTOLIN [Concomitant]
     Active Substance: ALBUTEROL SULFATE
  18. NAPROXEN. [Concomitant]
     Active Substance: NAPROXEN

REACTIONS (24)
  - Decreased appetite [Not Recovered/Not Resolved]
  - Pain [Unknown]
  - Urinary incontinence [Not Recovered/Not Resolved]
  - Dyspepsia [Unknown]
  - Fluid retention [Unknown]
  - Abdominal distension [Unknown]
  - Stress [Unknown]
  - Chest discomfort [Unknown]
  - Asthenia [Not Recovered/Not Resolved]
  - Anxiety [Unknown]
  - Intercepted medication error [Unknown]
  - Vomiting [Unknown]
  - Gastrooesophageal reflux disease [Not Recovered/Not Resolved]
  - Abdominal discomfort [Not Recovered/Not Resolved]
  - Ill-defined disorder [Not Recovered/Not Resolved]
  - Weight decreased [Unknown]
  - Fatigue [Not Recovered/Not Resolved]
  - Dyspnoea [Not Recovered/Not Resolved]
  - Productive cough [Not Recovered/Not Resolved]
  - Hypotension [Unknown]
  - Abdominal distension [Not Recovered/Not Resolved]
  - Abdominal discomfort [Unknown]
  - Headache [Unknown]
  - Palpitations [Unknown]

NARRATIVE: CASE EVENT DATE: 20180601
